FAERS Safety Report 5701285-1 (Version None)
Quarter: 2008Q2

REPORT INFORMATION
  Report Type: 
  Country: None (occurrence: None)
  Receive Date: 20080407
  Receipt Date: 20080327
  Transmission Date: 20081010
  Serious: Yes (Death)
  Sender: FDA-Public Use
  Company Number: GXKR2008GB03007

PATIENT
  Age: 19 Year
  Sex: Male
  Weight: 40 kg

DRUGS (9)
  1. NIFEDIPINE [Suspect]
     Dosage: 15 MG, TID
  2. OMEPRAZOLE [Suspect]
     Dosage: 40 MG, QD
  3. VALLERGAN(ALIMEMAZINE TARTRATE) [Suspect]
  4. ATROVEN (IPRATROPIUM BROMIDE) [Concomitant]
  5. DOMPERIDONE (DOMPERIDONE) [Concomitant]
  6. FLUTICASONE PROPIONATE (FLUTICASONE PROPINATE) [Concomitant]
  7. ALGINIC ACID (ALGINIC ACID) [Concomitant]
  8. SEREVENT [Concomitant]
  9. SALBUTAMOL SULFATE (SALBUTAMOL SULFATE) [Concomitant]

REACTIONS (4)
  - DRUG INEFFECTIVE [None]
  - HAEMOLYSIS [None]
  - IDIOPATHIC THROMBOCYTOPENIC PURPURA [None]
  - LABORATORY TEST INTERFERENCE [None]
